FAERS Safety Report 6521914-2 (Version None)
Quarter: 2009Q4

REPORT INFORMATION
  Report Type: 
  Country: None (occurrence: None)
  Receive Date: 20091229
  Receipt Date: 20091229
  Transmission Date: 20100525
  Serious: Yes (Hospitalization)
  Sender: FDA-Public Use
  Company Number: None

PATIENT
  Age: 51 Year
  Sex: Male

DRUGS (1)
  1. PREDNISONE [Suspect]
     Indication: SARCOIDOSIS
     Dosage: 40 MG EVERY DAY PO
     Route: 048
     Dates: start: 20090813, end: 20091107

REACTIONS (3)
  - APPETITE DISORDER [None]
  - DYSGEUSIA [None]
  - HYPERGLYCAEMIA [None]
